FAERS Safety Report 19273294 (Version 8)
Quarter: 2022Q1

REPORT INFORMATION
  Report Type: Report from Study
  Country: CO (occurrence: CO)
  Receive Date: 20210519
  Receipt Date: 20220212
  Transmission Date: 20220423
  Serious: Yes (Other)
  Sender: FDA-Public Use
  Company Number: NVSC2019CO071286

PATIENT
  Age: 63 Year
  Sex: Male
  Weight: 57 kg

DRUGS (5)
  1. TASIGNA [Suspect]
     Active Substance: NILOTINIB
     Indication: Chronic myeloid leukaemia
     Dosage: 300 MG, Q12H
     Route: 048
     Dates: start: 201902
  2. TASIGNA [Suspect]
     Active Substance: NILOTINIB
     Dosage: 150 MG, Q12H
     Route: 048
  3. TASIGNA [Suspect]
     Active Substance: NILOTINIB
     Dosage: 800 MG, QD
     Route: 048
  4. TASIGNA [Suspect]
     Active Substance: NILOTINIB
     Dosage: 300 MG, QD
     Route: 048
  5. TASIGNA [Suspect]
     Active Substance: NILOTINIB
     Dosage: 600 MG, QD
     Route: 048

REACTIONS (19)
  - Cataract [Unknown]
  - Visual impairment [Unknown]
  - Blindness [Unknown]
  - Boredom [Unknown]
  - Influenza [Unknown]
  - Arthritis [Unknown]
  - Illness [Unknown]
  - Arthralgia [Unknown]
  - Fatigue [Unknown]
  - Osteoarthritis [Unknown]
  - Malaise [Unknown]
  - Dysstasia [Unknown]
  - Fall [Unknown]
  - Ligament sprain [Unknown]
  - Gait disturbance [Unknown]
  - Pain [Unknown]
  - Rash pruritic [Unknown]
  - Spinal pain [Unknown]
  - Inappropriate schedule of product administration [Unknown]

NARRATIVE: CASE EVENT DATE: 20191101
